FAERS Safety Report 11347653 (Version 1)
Quarter: 2015Q3

REPORT INFORMATION
  Report Type: Spontaneous
  Country: US (occurrence: US)
  Receive Date: 20150803
  Receipt Date: 20150803
  Transmission Date: 20151125
  Serious: Yes (Other)
  Sender: FDA-Public Use
  Company Number: US-ELI_LILLY_AND_COMPANY-US201109001449

PATIENT
  Sex: Female

DRUGS (1)
  1. ZYPREXA [Suspect]
     Active Substance: OLANZAPINE
     Indication: DEPRESSION
     Dosage: UNK, UNKNOWN
     Route: 048

REACTIONS (5)
  - Weight increased [Recovering/Resolving]
  - Feeling abnormal [Unknown]
  - Off label use [Recovered/Resolved]
  - Glucose tolerance impaired [Unknown]
  - Blood cholesterol increased [Unknown]
